FAERS Safety Report 23708095 (Version 2)
Quarter: 2025Q3

REPORT INFORMATION
  Report Type: Report from Study
  Country: JP (occurrence: JP)
  Receive Date: 20240404
  Receipt Date: 20250716
  Transmission Date: 20251021
  Serious: Yes (Other)
  Sender: BIOMARIN
  Company Number: JP-BIOMARINAP-JP-2024-156956

PATIENT
  Age: 43 Year
  Sex: Male

DRUGS (6)
  1. PALYNZIQ [Suspect]
     Active Substance: PEGVALIASE-PQPZ
     Indication: Phenylketonuria
     Dates: start: 20231002, end: 20231017
  2. PALYNZIQ [Suspect]
     Active Substance: PEGVALIASE-PQPZ
     Dosage: 2.5 MILLIGRAM, QW
     Dates: start: 20230706, end: 20230809
  3. PREDNISOLONE [Concomitant]
     Active Substance: PREDNISOLONE
     Indication: Product used for unknown indication
     Dates: start: 20230824, end: 20231205
  4. DEXTROSE\SODIUM CHLORIDE\SODIUM LACTATE [Concomitant]
     Active Substance: DEXTROSE\SODIUM CHLORIDE\SODIUM LACTATE
     Indication: Dehydration
     Dosage: 500 MILLILITER, QD
     Dates: start: 20231017, end: 20231017
  5. Lactec d [Concomitant]
     Indication: Dehydration
     Dosage: 500 MILLILITER, QD
     Dates: start: 20231018, end: 20231019
  6. AMINO ACIDS\DEXTROSE\ELECTROLYTES NOS\VITAMINS [Concomitant]
     Active Substance: AMINO ACIDS\DEXTROSE\ELECTROLYTES NOS\VITAMINS
     Indication: Dehydration
     Dosage: 500 MILLILITER, QD
     Dates: start: 20231019, end: 20231020

REACTIONS (1)
  - Hypoaesthesia [Recovering/Resolving]

NARRATIVE: CASE EVENT DATE: 20231013
